FAERS Safety Report 10006021 (Version 1)
Quarter: 2014Q1

REPORT INFORMATION
  Report Type: Spontaneous
  Country: US (occurrence: US)
  Receive Date: 20140313
  Receipt Date: 20140313
  Transmission Date: 20141002
  Serious: Yes (Other)
  Sender: FDA-Public Use
  Company Number: US-MYLANLABS-2014S1004916

PATIENT
  Sex: Female

DRUGS (1)
  1. EPIPEN [Suspect]
     Indication: ANAPHYLACTIC REACTION

REACTIONS (2)
  - Drug effect decreased [Recovered/Resolved]
  - Expired drug administered [Recovered/Resolved]
